FAERS Safety Report 18415167 (Version 1)
Quarter: 2020Q4

REPORT INFORMATION
  Report Type: Spontaneous
  Country: CL (occurrence: CL)
  Receive Date: 20201022
  Receipt Date: 20201022
  Transmission Date: 20210114
  Serious: Yes (Hospitalization)
  Sender: FDA-Public Use
  Company Number: CL-GRANULES-CL-2020GRALIT00008

PATIENT
  Age: 35 Year
  Sex: Female

DRUGS (5)
  1. CYCLOSPORINE. [Interacting]
     Active Substance: CYCLOSPORINE
     Indication: DRUG ERUPTION
     Route: 048
  2. IBUPROFEN. [Suspect]
     Active Substance: IBUPROFEN
     Indication: NASOPHARYNGITIS
     Route: 065
  3. PETROLEUM JELLY [Interacting]
     Active Substance: PETROLATUM
     Indication: DRUG ERUPTION
     Route: 061
  4. CHLORPHENAMINE [Interacting]
     Active Substance: CHLORPHENIRAMINE MALEATE
     Indication: DRUG ERUPTION
     Route: 065
  5. IBUPROFEN. [Suspect]
     Active Substance: IBUPROFEN
     Indication: PRODUCT USED FOR UNKNOWN INDICATION
     Dosage: CONSUMED DRUG ONE YEAR PRIOR

REACTIONS (3)
  - Rash erythematous [Unknown]
  - Fixed eruption [Recovering/Resolving]
  - Dermatitis bullous [Recovering/Resolving]
